FAERS Safety Report 7056654-7 (Version None)
Quarter: 2010Q4

REPORT INFORMATION
  Report Type: 
  Country: None (occurrence: None)
  Receive Date: 20101019
  Receipt Date: 20101004
  Transmission Date: 20110411
  Serious: Yes (Hospitalization, Other)
  Sender: FDA-Public Use
  Company Number: GER/UKI/10/0016223

PATIENT
  Age: 36 Year
  Sex: Female
  Weight: 54 kg

DRUGS (8)
  1. LAMOTRIGINE [Suspect]
     Indication: GRAND MAL CONVULSION
     Dosage: 2 IN 1 D, ORAL
     Route: 048
     Dates: start: 20080319, end: 20100123
  2. ARIPIPRAZOLE [Concomitant]
  3. DICLOFENAC SODIUM [Concomitant]
  4. FOLIC ACID [Concomitant]
  5. ISPAGHULA HUSK (PLANTAGO OVATA HUSK) [Concomitant]
  6. LANSOPRAZOLE [Concomitant]
  7. PROPANOLOL HYDROCHLORIDE (PROPRANOLOL HYDROCHLORIDE) [Concomitant]
  8. SERTRALINE HYDROCHLORIDE [Concomitant]

REACTIONS (2)
  - DRUG EXPOSURE DURING PREGNANCY [None]
  - SEXUALLY TRANSMITTED DISEASE [None]
